FAERS Safety Report 16157705 (Version 2)
Quarter: 2020Q2

REPORT INFORMATION
  Report Type: Spontaneous
  Country: ES (occurrence: ES)
  Receive Date: 20190404
  Receipt Date: 20200615
  Transmission Date: 20200713
  Serious: Yes (Other)
  Sender: FDA-Public Use
  Company Number: ES-BAUSCH-BL-2019-009730

PATIENT
  Age: 64 Year
  Sex: Female

DRUGS (8)
  1. FUROSEMIDE. [Concomitant]
     Active Substance: FUROSEMIDE
     Indication: CARDIAC FAILURE CHRONIC
     Route: 065
     Dates: start: 20190228, end: 20190305
  2. ATORVASTATIN [Concomitant]
     Active Substance: ATORVASTATIN
     Indication: DYSLIPIDAEMIA
     Route: 065
     Dates: start: 20190218, end: 20190305
  3. OMEPRAZOLE. [Concomitant]
     Active Substance: OMEPRAZOLE
     Indication: HAEMORRHAGE PROPHYLAXIS
     Route: 065
     Dates: start: 20190218, end: 20190305
  4. DEXAMETHASONE. [Suspect]
     Active Substance: DEXAMETHASONE
     Indication: MENINGITIS PNEUMOCOCCAL
     Route: 065
     Dates: start: 20190218, end: 20190305
  5. ACETYLSALICYLIC ACID [Interacting]
     Active Substance: ASPIRIN
     Indication: CEREBROVASCULAR ACCIDENT
     Route: 065
     Dates: start: 20190218, end: 20190305
  6. ENOXAPARINA ROVI [Interacting]
     Active Substance: ENOXAPARIN SODIUM
     Indication: EMBOLISM VENOUS
     Dosage: ENOXAPARIN ROVI 6,000 IU (60 MG) / 0.6 ML SOLUTION FOR INJECTION IN PRE-FILLED SYRINGE
     Route: 058
     Dates: start: 20190218, end: 20190305
  7. PARACETAMOL [Concomitant]
     Active Substance: ACETAMINOPHEN
     Indication: ANALGESIC THERAPY
     Route: 065
     Dates: start: 20190218, end: 20190305
  8. LEVOFLOXACIN. [Concomitant]
     Active Substance: LEVOFLOXACIN
     Indication: MENINGITIS PNEUMOCOCCAL
     Route: 065
     Dates: start: 20190228, end: 20190305

REACTIONS (5)
  - Drug interaction [Recovering/Resolving]
  - Haemorrhage [Recovered/Resolved]
  - Packed red blood cell transfusion [Not Recovered/Not Resolved]
  - Haematoma [Recovered/Resolved]
  - Blood loss anaemia [Not Recovered/Not Resolved]

NARRATIVE: CASE EVENT DATE: 20190305
